FAERS Safety Report 15258097 (Version 1)
Quarter: 2018Q3

REPORT INFORMATION
  Report Type: Spontaneous
  Country: JP (occurrence: JP)
  Receive Date: 20180809
  Receipt Date: 20180809
  Transmission Date: 20181010
  Serious: Yes (Hospitalization)
  Sender: FDA-Public Use
  Company Number: JP-SUN PHARMACEUTICAL INDUSTRIES LTD-2018R3-180516

PATIENT
  Age: 66 Year
  Sex: Female

DRUGS (2)
  1. TEGRETOL [Suspect]
     Active Substance: CARBAMAZEPINE
     Indication: BIPOLAR DISORDER
     Dosage: 100 MG, DAILY
     Route: 048
  2. LITHIUM. [Suspect]
     Active Substance: LITHIUM
     Indication: BIPOLAR DISORDER
     Dosage: 600 MG, DAILY
     Route: 065

REACTIONS (4)
  - Toxicity to various agents [Recovering/Resolving]
  - Sinus arrest [Recovering/Resolving]
  - Renal impairment [Recovering/Resolving]
  - Nausea [Recovering/Resolving]
